FAERS Safety Report 4402642-6 (Version None)
Quarter: 2004Q3

REPORT INFORMATION
  Report Type: 
  Country: None (occurrence: None)
  Receive Date: 20040721
  Receipt Date: 20040712
  Transmission Date: 20050211
  Serious: Yes (Other)
  Sender: FDA-Public Use
  Company Number: US-ROCHE-374225

PATIENT
  Age: 23 Year
  Sex: Female
  Weight: 74.8 kg

DRUGS (5)
  1. ACCUTANE [Suspect]
     Route: 048
     Dates: start: 20030915, end: 20031115
  2. ACCUTANE [Suspect]
     Route: 048
     Dates: start: 20031115, end: 20031217
  3. UNKNOWN DRUG [Concomitant]
     Indication: BRONCHITIS
     Dosage: TRADENAME REPORTED AS Z-PACK.
     Route: 048
     Dates: start: 20031215, end: 20031215
  4. AMOXICILLIN [Concomitant]
     Indication: BRONCHITIS
     Route: 048
     Dates: start: 20031215, end: 20031215
  5. DEPO-PROVERA [Concomitant]
     Route: 048
     Dates: end: 20040115

REACTIONS (13)
  - ABDOMINAL PAIN [None]
  - ACQUIRED NIGHT BLINDNESS [None]
  - AMENORRHOEA [None]
  - ARTHRALGIA [None]
  - BLOOD FOLLICLE STIMULATING HORMONE DECREASED [None]
  - DEPRESSION [None]
  - HEADACHE [None]
  - INSOMNIA [None]
  - INTENTIONAL SELF-INJURY [None]
  - MENSTRUATION IRREGULAR [None]
  - TINNITUS [None]
  - VISION BLURRED [None]
  - WEIGHT INCREASED [None]
